FAERS Safety Report 4912369-X (Version None)
Quarter: 2006Q1

REPORT INFORMATION
  Report Type: 
  Country: None (occurrence: None)
  Receive Date: 20060215
  Receipt Date: 20050127
  Transmission Date: 20060701
  Serious: No
  Sender: FDA-Public Use
  Company Number: US-GLAXOSMITHKLINE-A0542638A

PATIENT
  Age: 37 Year
  Sex: Female
  Weight: 67.3 kg

DRUGS (3)
  1. VALTREX [Suspect]
     Dosage: 1TAB TWICE PER DAY
     Route: 048
  2. ZYRTEC [Concomitant]
  3. ALBUTEROL [Concomitant]

REACTIONS (1)
  - DIZZINESS [None]
